FAERS Safety Report 7761673-9 (Version None)
Quarter: 2011Q3

REPORT INFORMATION
  Report Type: 
  Country: None (occurrence: None)
  Receive Date: 20110915
  Receipt Date: 20110824
  Transmission Date: 20111222
  Serious: Yes (Hospitalization)
  Sender: FDA-Public Use
  Company Number: 2011182187

PATIENT
  Age: 48 Year
  Sex: Male

DRUGS (8)
  1. GEMTUZUMAB OZOGAMICIN (GEMTUZUMAB OZOGAMICIN) UNKNOWN [Suspect]
     Indication: ACUTE MYELOID LEUKAEMIA
     Dosage: 6 MG, INTRAVENOUS
     Route: 042
     Dates: start: 20110715, end: 20110715
  2. GEMTUZUMAB OZOGAMICIN (GEMTUZUMAB OZOGAMICIN) UNKNOWN [Suspect]
     Indication: MYELODYSPLASTIC SYNDROME
     Dosage: 6 MG, INTRAVENOUS
     Route: 042
     Dates: start: 20110715, end: 20110715
  3. DAUNORUBICIN HCL [Suspect]
     Indication: ACUTE MYELOID LEUKAEMIA
     Dosage: 50 MG/M2, INTRAVENOUS
     Route: 042
     Dates: start: 20110715, end: 20110725
  4. DAUNORUBICIN HCL [Suspect]
     Indication: MYELODYSPLASTIC SYNDROME
     Dosage: 50 MG/M2, INTRAVENOUS
     Route: 042
     Dates: start: 20110715, end: 20110725
  5. CYTARABINE [Suspect]
     Indication: ACUTE MYELOID LEUKAEMIA
     Dosage: 100 MG/M2, INTRAVENOUS
     Route: 042
     Dates: start: 20110715, end: 20110725
  6. CYTARABINE [Suspect]
     Indication: MYELODYSPLASTIC SYNDROME
     Dosage: 100 MG/M2, INTRAVENOUS
     Route: 042
     Dates: start: 20110715, end: 20110725
  7. ETOPOSIDE [Suspect]
     Indication: ACUTE MYELOID LEUKAEMIA
     Dosage: 100 MG/M2, INTRAVENOUS
     Route: 042
     Dates: start: 20110715, end: 20110725
  8. ETOPOSIDE [Suspect]
     Indication: MYELODYSPLASTIC SYNDROME
     Dosage: 100 MG/M2, INTRAVENOUS
     Route: 042
     Dates: start: 20110715, end: 20110725

REACTIONS (4)
  - LEUKAEMIC INFILTRATION BRAIN [None]
  - CEREBRAL HAEMORRHAGE [None]
  - CONVULSION [None]
  - COMA SCALE ABNORMAL [None]
